FAERS Safety Report 7722647-7 (Version None)
Quarter: 2011Q3

REPORT INFORMATION
  Report Type: 
  Country: None (occurrence: None)
  Receive Date: 20110831
  Receipt Date: 20110827
  Transmission Date: 20111222
  Serious: Yes (Death)
  Sender: FDA-Public Use
  Company Number: US-GENENTECH-323633

PATIENT
  Age: 69 Year
  Sex: Male

DRUGS (1)
  1. RANIBIZUMAB [Suspect]
     Indication: DIABETIC RETINAL OEDEMA
     Dosage: 0.05 ML, PRN
     Route: 031
     Dates: start: 20110208, end: 20110309

REACTIONS (1)
  - DEATH [None]
